FAERS Safety Report 12183669 (Version 1)
Quarter: 2016Q1

REPORT INFORMATION
  Report Type: Spontaneous
  Country: US (occurrence: US)
  Receive Date: 20160316
  Receipt Date: 20160316
  Transmission Date: 20160526
  Serious: No
  Sender: FDA-Public Use
  Company Number: US-PFIZER INC-2016148588

PATIENT
  Age: 82 Year
  Sex: Male
  Weight: 58.97 kg

DRUGS (1)
  1. SUTENT [Suspect]
     Active Substance: SUNITINIB MALATE
     Indication: RENAL CANCER
     Dosage: 12.5 MG, CYCLIC (4 WEEKS ON AND TWO WEEKS OFF)
     Dates: end: 201508

REACTIONS (2)
  - Renal cancer [Unknown]
  - Disease recurrence [Unknown]

NARRATIVE: CASE EVENT DATE: 201508
